FAERS Safety Report 10076079 (Version 3)
Quarter: 2014Q2

REPORT INFORMATION
  Report Type: Spontaneous
  Country: US (occurrence: US)
  Receive Date: 20140414
  Receipt Date: 20140604
  Transmission Date: 20141212
  Serious: No
  Sender: FDA-Public Use
  Company Number: US-PFIZER INC-2014101014

PATIENT
  Age: 57 Year
  Sex: Female

DRUGS (3)
  1. ADVIL ALLERGY AND CONGESTION RELIEF [Suspect]
     Indication: HYPERSENSITIVITY
     Dosage: UNK
     Dates: start: 201403, end: 201403
  2. ADVIL ALLERGY AND CONGESTION RELIEF [Suspect]
     Indication: NASAL CONGESTION
     Dosage: UNK
  3. ADVIL ALLERGY AND CONGESTION RELIEF [Suspect]
     Indication: UPPER RESPIRATORY TRACT CONGESTION

REACTIONS (1)
  - Drug ineffective [Unknown]
